FAERS Safety Report 4588855-1 (Version None)
Quarter: 2005Q1

REPORT INFORMATION
  Report Type: 
  Country: None (occurrence: None)
  Receive Date: 20050222
  Receipt Date: 20040817
  Transmission Date: 20050727
  Serious: Yes (Other)
  Sender: FDA-Public Use
  Company Number: JP-GLAXOSMITHKLINE-B0343105A

PATIENT
  Age: 37 Year
  Sex: Male

DRUGS (15)
  1. COMBIVIR [Suspect]
     Indication: HIV INFECTION
     Dosage: 2TAB PER DAY
     Route: 048
     Dates: start: 20030703, end: 20030713
  2. ZIAGEN [Suspect]
     Indication: HIV INFECTION
     Route: 048
     Dates: start: 20030714, end: 20030728
  3. CLARITH [Suspect]
     Indication: MYCOBACTERIUM AVIUM COMPLEX INFECTION
     Dosage: 400MG TWICE PER DAY
     Route: 048
     Dates: start: 20030401
  4. ESANBUTOL [Suspect]
     Indication: MYCOBACTERIUM AVIUM COMPLEX INFECTION
     Dosage: 750MG PER DAY
     Route: 048
     Dates: start: 20030401
  5. SPARFLOXACIN [Suspect]
     Indication: MYCOBACTERIUM AVIUM COMPLEX INFECTION
     Dosage: 300MG PER DAY
     Route: 048
     Dates: start: 20030401, end: 20040728
  6. BAKTAR [Suspect]
     Indication: CEREBRAL TOXOPLASMOSIS
     Dosage: 6TAB PER DAY
     Route: 048
     Dates: start: 20030708, end: 20030714
  7. EPIVIR [Concomitant]
     Indication: HIV INFECTION
     Dosage: 150MG TWICE PER DAY
     Route: 048
     Dates: start: 20030401, end: 20040728
  8. ZERIT [Concomitant]
     Indication: HIV INFECTION
     Route: 048
     Dates: start: 20030401, end: 20030702
  9. KALETRA [Concomitant]
     Indication: HIV INFECTION
     Dosage: 6CAP PER DAY
     Route: 048
     Dates: start: 20030401
  10. CIDOFOVIR [Concomitant]
     Indication: RETINITIS
     Route: 042
     Dates: start: 20030401, end: 20030618
  11. VALGANCYCLOVIR [Concomitant]
     Indication: RETINITIS
     Dosage: 900MG TWO TIMES PER WEEK
     Route: 048
     Dates: start: 20030630
  12. VALGANCYCLOVIR [Concomitant]
     Route: 048
     Dates: start: 20030717
  13. PREDONINE [Concomitant]
     Indication: ADRENAL INSUFFICIENCY
     Route: 065
     Dates: start: 20030401
  14. BENAMBAX [Concomitant]
     Indication: INFECTION PROPHYLAXIS
     Route: 055
     Dates: start: 20030401
  15. GRAN [Concomitant]
     Indication: WHITE BLOOD CELL COUNT DECREASED
     Route: 042
     Dates: start: 20030401

REACTIONS (3)
  - ALANINE AMINOTRANSFERASE INCREASED [None]
  - ASPARTATE AMINOTRANSFERASE INCREASED [None]
  - HEPATIC FUNCTION ABNORMAL [None]
